FAERS Safety Report 25173008 (Version 1)
Quarter: 2025Q2

REPORT INFORMATION
  Report Type: Spontaneous
  Country: JP (occurrence: JP)
  Receive Date: 20250408
  Receipt Date: 20250408
  Transmission Date: 20250717
  Serious: Yes (Other)
  Sender: OTSUKA
  Company Number: JP-MMM-Otsuka-RBTCUZEK

PATIENT
  Age: 57 Year
  Sex: Female

DRUGS (7)
  1. BUSULFAN [Suspect]
     Active Substance: BUSULFAN
     Indication: Allogenic bone marrow transplantation therapy
     Route: 065
  2. FLUDARABINE PHOSPHATE [Suspect]
     Active Substance: FLUDARABINE PHOSPHATE
     Indication: Allogenic bone marrow transplantation therapy
     Route: 065
  3. MELPHALAN [Suspect]
     Active Substance: MELPHALAN
     Indication: Allogenic bone marrow transplantation therapy
     Route: 065
  4. METHOTREXATE [Suspect]
     Active Substance: METHOTREXATE
     Indication: Prophylaxis against graft versus host disease
     Route: 065
  5. CYCLOSPORINE [Suspect]
     Active Substance: CYCLOSPORINE
     Indication: Prophylaxis against graft versus host disease
     Route: 065
  6. METHYLPREDNISOLONE [Suspect]
     Active Substance: METHYLPREDNISOLONE
     Indication: Graft versus host disease in gastrointestinal tract
     Route: 065
  7. PROGRAF [Suspect]
     Active Substance: TACROLIMUS
     Indication: Graft versus host disease in gastrointestinal tract
     Route: 065

REACTIONS (8)
  - Hydronephrosis [Unknown]
  - Hydroureter [Unknown]
  - Ureteric stenosis [Unknown]
  - Ureteral disorder [Unknown]
  - Urinary tract infection staphylococcal [Recovered/Resolved]
  - Viral haemorrhagic cystitis [Recovering/Resolving]
  - Staphylococcal bacteraemia [Unknown]
  - Thrombotic microangiopathy [Unknown]
